FAERS Safety Report 7559847-5 (Version None)
Quarter: 2011Q2

REPORT INFORMATION
  Report Type: 
  Country: None (occurrence: None)
  Receive Date: 20110609
  Receipt Date: 20110526
  Transmission Date: 20111010
  Serious: Yes (Hospitalization)
  Sender: FDA-Public Use
  Company Number: 2011028534

PATIENT
  Sex: Female

DRUGS (4)
  1. RHO(D) IMMUNE GLOBULIN NOS [Suspect]
     Indication: FOETAL-MATERNAL HAEMORRHAGE
     Dosage: 13500 IU QD, EXCT RATE UNKNOWN (9 VIALS CONSECUTIVELY) INTRVENOUS (NOT OTHERWISE SPECIFIED)
     Route: 042
     Dates: start: 20110507, end: 20110507
  2. FAMOTIDINE [Concomitant]
  3. PRENATAL MULTIVITAMINS (PRENATAL VITAMINS) [Concomitant]
  4. FERROUS SULFATE TAB [Concomitant]

REACTIONS (4)
  - ACUTE RESPIRATORY DISTRESS SYNDROME [None]
  - ALLERGIC TRANSFUSION REACTION [None]
  - RESPIRATORY ALKALOSIS [None]
  - CARDIAC ENZYMES INCREASED [None]
